FAERS Safety Report 6283407-X (Version None)
Quarter: 2009Q3

REPORT INFORMATION
  Report Type: 
  Country: None (occurrence: None)
  Receive Date: 20090721
  Receipt Date: 20090721
  Transmission Date: 20100115
  Serious: Yes (Hospitalization)
  Sender: FDA-Public Use
  Company Number: None

PATIENT
  Sex: Female
  Weight: 106 kg

DRUGS (10)
  1. CETUXIMAB, 400MG/M2, BRISTOL MYERS SQUIBB [Suspect]
     Indication: CERVIX CARCINOMA
     Dosage: 800MG, X1, IV
     Route: 042
     Dates: start: 20090604
  2. CETUXIMAB, 150MG/M2, BRISTOL MYERS SQUIBB [Suspect]
     Indication: CERVIX CARCINOMA
     Dosage: 500MG, WEEKLY, IV
     Route: 042
     Dates: start: 20090615
  3. CETUXIMAB, 150MG/M2, BRISTOL MYERS SQUIBB [Suspect]
     Indication: CERVIX CARCINOMA
     Dosage: 500MG, WEEKLY, IV
     Route: 042
     Dates: start: 20090622
  4. CETUXIMAB, 150MG/M2, BRISTOL MYERS SQUIBB [Suspect]
     Indication: CERVIX CARCINOMA
     Dosage: 500MG, WEEKLY, IV
     Route: 042
     Dates: start: 20090629
  5. LOPERAMIDE HYDROCHLORIDE [Concomitant]
  6. CLONAZEPAM [Concomitant]
  7. LEXAPRO [Concomitant]
  8. METFORMIN [Concomitant]
  9. HYDROCODONE [Concomitant]
  10. PROCHLORPERAZINE [Concomitant]

REACTIONS (5)
  - ASTHENIA [None]
  - DIARRHOEA [None]
  - FATIGUE [None]
  - MALAISE [None]
  - URINARY TRACT INFECTION [None]
